FAERS Safety Report 19954700 (Version 1)
Quarter: 2021Q4

REPORT INFORMATION
  Report Type: Spontaneous
  Country: US (occurrence: US)
  Receive Date: 20211012
  Receipt Date: 20211012
  Transmission Date: 20220303
  Serious: Yes (Hospitalization)
  Sender: FDA-Public Use
  Company Number: None

PATIENT
  Sex: Female
  Weight: 80.2 kg

DRUGS (5)
  1. CYTARABINE [Suspect]
     Active Substance: CYTARABINE
  2. DEXAMETHASONE [Suspect]
     Active Substance: DEXAMETHASONE
  3. MERCAPTOPURINE [Suspect]
     Active Substance: MERCAPTOPURINE
  4. METHOTREXATE [Suspect]
     Active Substance: METHOTREXATE
  5. VINCRISTINE SULFATE [Suspect]
     Active Substance: VINCRISTINE SULFATE

REACTIONS (3)
  - Withdrawal syndrome [None]
  - Fall [None]
  - Arthropathy [None]

NARRATIVE: CASE EVENT DATE: 20211011
